FAERS Safety Report 10640523 (Version 1)
Quarter: 2014Q4

REPORT INFORMATION
  Report Type: Spontaneous
  Country: IN (occurrence: None)
  Receive Date: 20141205
  Receipt Date: 20141205
  Transmission Date: 20150529
  Serious: Yes (Life-Threatening)
  Sender: FDA-Public Use
  Company Number: 2014ECL00014

PATIENT
  Age: 1 Year
  Sex: Male
  Weight: 8 kg

DRUGS (7)
  1. GLYCOPYRROLATE(GLYCOPYRROLATE) [Concomitant]
  2. ATACURIUM(ATRCURIUM) [Concomitant]
  3. KETAMINE(KETAMINE) [Concomitant]
  4. MIDAZOLAM(MIDAZOLAM) [Concomitant]
  5. FENTANYL(FENTANYL) [Concomitant]
     Active Substance: FENTANYL CITRATE
  6. NEOSTIGMINE (NEOSTIGMINE ) [Suspect]
     Active Substance: NEOSTIGMINE
     Indication: NEUROMUSCULAR BLOCKADE REVERSAL
  7. SEVOFLURANE(SEVOFLURANE) [Concomitant]

REACTIONS (3)
  - Pulmonary oedema [None]
  - Crepitations [None]
  - Oxygen saturation decreased [None]
